FAERS Safety Report 4338448-6 (Version None)
Quarter: 2004Q2

REPORT INFORMATION
  Report Type: 
  Country: None (occurrence: None)
  Receive Date: 20040407
  Receipt Date: 20040325
  Transmission Date: 20050107
  Serious: Yes (Death, Hospitalization, Other)
  Sender: FDA-Public Use
  Company Number: 2004014609

PATIENT
  Age: 74 Year
  Sex: Male

DRUGS (6)
  1. ZOLOFT [Suspect]
     Indication: DEPRESSED MOOD
     Dosage: 25 MG (DAILY), ORAL
     Route: 048
     Dates: start: 20040210, end: 20040220
  2. ZOLOFT [Suspect]
     Indication: DYSTHYMIC DISORDER
     Dosage: 25 MG (DAILY), ORAL
     Route: 048
     Dates: start: 20040210, end: 20040220
  3. ATENOLOL [Concomitant]
  4. ACETYLSALICYLIC ACID SRT [Concomitant]
  5. PROTEIN SUPPLEMENTS (PROTEIN SUPPLEMENTS) [Concomitant]
  6. LORAZEPAM [Concomitant]

REACTIONS (15)
  - ANOREXIA [None]
  - ASTHENIA [None]
  - AZOTAEMIA [None]
  - DEPRESSED LEVEL OF CONSCIOUSNESS [None]
  - DIARRHOEA [None]
  - DYSPNOEA [None]
  - GASTRITIS ATROPHIC [None]
  - HEPATIC ENZYME INCREASED [None]
  - HYPONATRAEMIA [None]
  - MALAISE [None]
  - NAUSEA [None]
  - ORTHOSTATIC HYPOTENSION [None]
  - POLYMERASE CHAIN REACTION [None]
  - SOPOR [None]
  - SYNCOPE [None]
